FAERS Safety Report 5197408-6 (Version None)
Quarter: 2007Q1

REPORT INFORMATION
  Report Type: 
  Country: None (occurrence: None)
  Receive Date: 20070103
  Receipt Date: 20061225
  Transmission Date: 20070707
  Serious: Yes (Other)
  Sender: FDA-Public Use
  Company Number: JP-SANOFI-SYNTHELABO-A01200610983

PATIENT
  Age: 84 Year
  Sex: Female

DRUGS (8)
  1. ZOLPIDEM TARTRATE [Suspect]
     Indication: DRUG USE FOR UNKNOWN INDICATION
     Dosage: 10 MG
     Route: 065
     Dates: start: 20060925, end: 20061025
  2. OLMETEC [Concomitant]
     Dosage: 20 MG
     Route: 048
     Dates: start: 20060925
  3. GASMOTIN [Concomitant]
     Dosage: 15 MG
     Route: 048
     Dates: start: 20061026
  4. TAKEPRON [Concomitant]
     Dosage: 30 MG
     Route: 048
     Dates: start: 20061026
  5. AMOBAN [Concomitant]
     Dosage: 7.5 MG
     Route: 048
     Dates: start: 20061026
  6. PURSENNID [Concomitant]
     Dosage: 48 MG
     Route: 048
     Dates: start: 20060925
  7. VOLTAREN [Concomitant]
     Dosage: UNK
     Route: 048
  8. MUCOSTA [Concomitant]
     Dosage: 300 MG
     Route: 048
     Dates: start: 20060925

REACTIONS (2)
  - DELIRIUM [None]
  - DEPRESSED LEVEL OF CONSCIOUSNESS [None]
